FAERS Safety Report 17595312 (Version 1)
Quarter: 2020Q1

REPORT INFORMATION
  Report Type: Spontaneous
  Country: US (occurrence: US)
  Receive Date: 20200328
  Receipt Date: 20200328
  Transmission Date: 20200409
  Serious: No
  Sender: FDA-Public Use
  Company Number: US-009507513-2003USA010240

PATIENT

DRUGS (1)
  1. INTRON A [Suspect]
     Active Substance: INTERFERON ALFA-2B
     Indication: MALIGNANT NEOPLASM OF CONJUNCTIVA
     Dosage: 1 MIO IE/ML 4 PER DAY

REACTIONS (1)
  - Product use in unapproved indication [Unknown]
